FAERS Safety Report 11874820 (Version 1)
Quarter: 2015Q4

REPORT INFORMATION
  Report Type: Spontaneous
  Country: US (occurrence: None)
  Receive Date: 20151228
  Receipt Date: 20151228
  Transmission Date: 20160305
  Serious: Yes (Hospitalization)
  Sender: FDA-Public Use
  Company Number: None

PATIENT
  Age: 20 Year
  Sex: Male
  Weight: 63.5 kg

DRUGS (3)
  1. KETOROLAC OPHTHALMIC SOLN 0.5% ALCON FOR SANDOZ [Suspect]
     Active Substance: KETOROLAC TROMETHAMINE
     Indication: FOREIGN BODY SENSATION IN EYES
     Dosage: 1 DROP LEFT EYE (2 DOSES)
     Route: 047
  2. ERYTHROMYCIN OPHTHALMIC OINTMENT USP 0.5% [Concomitant]
     Active Substance: ERYTHROMYCIN
  3. KETOROLAC OPHTHALMIC SOLN 0.5% ALCON FOR SANDOZ [Suspect]
     Active Substance: KETOROLAC TROMETHAMINE
     Indication: EYE PAIN
     Dosage: 1 DROP LEFT EYE (2 DOSES)
     Route: 047

REACTIONS (1)
  - Keratorhexis [None]

NARRATIVE: CASE EVENT DATE: 20151210
